FAERS Safety Report 18598301 (Version 6)
Quarter: 2021Q4

REPORT INFORMATION
  Report Type: Spontaneous
  Country: IT (occurrence: IT)
  Receive Date: 20201210
  Receipt Date: 20211013
  Transmission Date: 20220303
  Serious: Yes (Other)
  Sender: FDA-Public Use
  Company Number: IT-ROCHE-2459515

PATIENT
  Age: 57 Year

DRUGS (1)
  1. ADO-TRASTUZUMAB EMTANSINE [Suspect]
     Active Substance: ADO-TRASTUZUMAB EMTANSINE
     Indication: Breast cancer
     Route: 065
     Dates: start: 20190828

REACTIONS (25)
  - Aspartate aminotransferase increased [Unknown]
  - Alanine aminotransferase increased [Unknown]
  - Dyspepsia [Unknown]
  - Constipation [Unknown]
  - Arthralgia [Unknown]
  - Pharyngitis [Unknown]
  - Asthenia [Unknown]
  - Pyrexia [Unknown]
  - Tracheitis [Unknown]
  - Odynophagia [Unknown]
  - Cough [Unknown]
  - Hypertension [Unknown]
  - Constipation [Unknown]
  - Headache [Unknown]
  - Asthenia [Unknown]
  - Oedema peripheral [Unknown]
  - Abdominal pain [Unknown]
  - Rash pustular [Unknown]
  - Lymphangitis [Unknown]
  - Muscle spasms [Unknown]
  - Fatigue [Unknown]
  - Fatigue [Unknown]
  - Dry mouth [Unknown]
  - Abdominal distension [Unknown]
  - Pruritus [Unknown]

NARRATIVE: CASE EVENT DATE: 20190828
